FAERS Safety Report 9723582 (Version 1)
Quarter: 2013Q4

REPORT INFORMATION
  Report Type: Spontaneous
  Country: US (occurrence: US)
  Receive Date: 20131202
  Receipt Date: 20131202
  Transmission Date: 20140711
  Serious: Yes (Hospitalization, Other)
  Sender: FDA-Public Use
  Company Number: US-PFIZER INC-2013340120

PATIENT
  Age: 45 Year
  Sex: Male
  Weight: 61.68 kg

DRUGS (3)
  1. LYRICA [Suspect]
     Indication: NEURALGIA
     Dosage: 150 MG, 3X/DAY
  2. FERROUS FUMARATE [Suspect]
     Indication: IRON DEFICIENCY ANAEMIA
     Dosage: UNK, EVERY 4 MONTHS
     Route: 041
  3. GLUCOPHAGE [Suspect]
     Indication: DIABETES MELLITUS
     Dosage: UNK
     Dates: start: 201209, end: 201309

REACTIONS (3)
  - Diabetes mellitus [Unknown]
  - Diabetes mellitus [Unknown]
  - Blood iron decreased [Unknown]
